FAERS Safety Report 13713159 (Version 2)
Quarter: 2017Q3

REPORT INFORMATION
  Report Type: Spontaneous
  Country: SE (occurrence: SE)
  Receive Date: 20170704
  Receipt Date: 20170719
  Transmission Date: 20171127
  Serious: Yes (Life-Threatening, Hospitalization, Other)
  Sender: FDA-Public Use
  Company Number: SE-ELI_LILLY_AND_COMPANY-SE201706013141

PATIENT
  Sex: Male

DRUGS (3)
  1. ZYPADHERA [Suspect]
     Active Substance: OLANZAPINE PAMOATE
     Indication: PRODUCT USED FOR UNKNOWN INDICATION
     Dosage: 210 MG, MONTHLY (1/M)
     Route: 030
     Dates: start: 20170118, end: 20170505
  2. MIRTAZAPINE. [Concomitant]
     Active Substance: MIRTAZAPINE
     Indication: PRODUCT USED FOR UNKNOWN INDICATION
     Dosage: UNK, UNKNOWN
     Route: 065
  3. CIRCADIN [Concomitant]
     Active Substance: MELATONIN
     Indication: PRODUCT USED FOR UNKNOWN INDICATION
     Dosage: UNK, UNKNOWN
     Route: 065

REACTIONS (20)
  - Generalised erythema [Unknown]
  - Toxicity to various agents [Recovered/Resolved]
  - Septic shock [Recovered/Resolved]
  - Vomiting [Unknown]
  - Laryngeal pain [Unknown]
  - Cholecystitis [Unknown]
  - Diarrhoea [Unknown]
  - Spinal pain [Unknown]
  - Ocular hyperaemia [Unknown]
  - Pyrexia [Unknown]
  - Chills [Unknown]
  - Polyuria [Unknown]
  - Acute kidney injury [Unknown]
  - Abdominal pain [Unknown]
  - Blood creatine increased [Unknown]
  - Pancreatitis [Unknown]
  - Musculoskeletal pain [Unknown]
  - Pain [Unknown]
  - Localised oedema [Unknown]
  - Intervertebral disc protrusion [Unknown]

NARRATIVE: CASE EVENT DATE: 20170505
